FAERS Safety Report 8957896 (Version 1)
Quarter: 2012Q4

REPORT INFORMATION
  Report Type: 
  Country: US (occurrence: US)
  Receive Date: 20121211
  Receipt Date: 20121211
  Transmission Date: 20130627
  Serious: No
  Sender: FDA-Public Use
  Company Number: US-BIOGENIDEC-2012BI057549

PATIENT
  Sex: Female

DRUGS (1)
  1. TYSABRI [Suspect]
     Indication: MULTIPLE SCLEROSIS
     Route: 042
     Dates: start: 20100303, end: 20120208

REACTIONS (10)
  - Anxiety [Unknown]
  - Adverse event [Unknown]
  - General symptom [Unknown]
  - Feeling abnormal [Unknown]
  - Tremor [Unknown]
  - Influenza like illness [Unknown]
  - Confusional state [Unknown]
  - Memory impairment [Unknown]
  - Chills [Unknown]
  - Fatigue [Unknown]
